FAERS Safety Report 10548473 (Version 1)
Quarter: 2014Q4

REPORT INFORMATION
  Report Type: Spontaneous
  Country: ES (occurrence: ES)
  Receive Date: 20141028
  Receipt Date: 20141028
  Transmission Date: 20150529
  Serious: Yes (Hospitalization)
  Sender: FDA-Public Use
  Company Number: ES-MALLINCKRODT-T201403794

PATIENT
  Age: 75 Year
  Sex: Male

DRUGS (7)
  1. KILOR [Concomitant]
  2. LOBIVON [Concomitant]
     Active Substance: NEBIVOLOL HYDROCHLORIDE
  3. ARTEDIL [Concomitant]
  4. PENTASA [Concomitant]
     Active Substance: MESALAMINE
     Dosage: 1 G, UNK
  5. DUODART [Concomitant]
     Active Substance: DUTASTERIDE\TAMSULOSIN
  6. PARIET [Concomitant]
     Active Substance: RABEPRAZOLE SODIUM
  7. OPTIRAY 320 [Suspect]
     Active Substance: IOVERSOL
     Indication: ARTERIOGRAM CORONARY
     Dosage: 180 ML, SINGLE
     Route: 013
     Dates: start: 20141008, end: 20141008

REACTIONS (2)
  - Encephalopathy [Recovered/Resolved]
  - Confusional state [Recovered/Resolved]

NARRATIVE: CASE EVENT DATE: 20141008
